FAERS Safety Report 10190642 (Version 2)
Quarter: 2014Q3

REPORT INFORMATION
  Report Type: Spontaneous
  Country: DE (occurrence: DE)
  Receive Date: 20140523
  Receipt Date: 20140714
  Transmission Date: 20150326
  Serious: Yes (Other)
  Sender: FDA-Public Use
  Company Number: DE-AMGEN-DEUSP2014036416

PATIENT
  Age: 81 Year
  Sex: Female
  Weight: 67.5 kg

DRUGS (6)
  1. CANDESARTAN [Concomitant]
     Active Substance: CANDESARTAN
     Indication: HYPERTENSION
     Dosage: 2 MG, QD
     Route: 048
     Dates: start: 2012
  2. DREISAVIT                          /00844801/ [Concomitant]
     Indication: DIALYSIS
     Dosage: UNK UNK, QD
     Route: 048
     Dates: start: 2006
  3. INSUMAN                            /00646001/ [Concomitant]
     Indication: DIABETES MELLITUS
     Dosage: 16 IU, BID
     Route: 058
     Dates: start: 2005
  4. MIMPARA [Suspect]
     Active Substance: CINACALCET HYDROCHLORIDE
     Indication: HYPERPARATHYROIDISM SECONDARY
     Dosage: 30 MG, QD
     Route: 048
     Dates: start: 20140408, end: 20140506
  5. MOLSIDOMIN [Concomitant]
     Indication: DYSPNOEA
     Dosage: 8 MG
     Route: 048
     Dates: start: 2012
  6. CLEXANE [Concomitant]
     Active Substance: ENOXAPARIN SODIUM
     Indication: ATRIAL FIBRILLATION
     Dosage: 40 MG, UNK
     Route: 058
     Dates: start: 2011

REACTIONS (2)
  - Angina pectoris [Recovered/Resolved]
  - Breast pain [Recovered/Resolved]

NARRATIVE: CASE EVENT DATE: 20140507
